FAERS Safety Report 10388887 (Version 1)
Quarter: 2014Q1

REPORT INFORMATION
  Report Type: Spontaneous
  Country: US (occurrence: None)
  Receive Date: 20140306
  Receipt Date: 20140306
  Transmission Date: 20141002
  Serious: Yes (Other)
  Sender: FDA-Public Use
  Company Number: 163-21880-13070224

PATIENT
  Age: 88 Year
  Sex: Female

DRUGS (9)
  1. REVLIMID (LENALIDOMIDE) (15 MILLIGRAM, CAPSULES) [Suspect]
     Indication: PLASMA CELL MYELOMA
     Route: 048
     Dates: start: 201008
  2. ALKERAN (MELPHALAN) (MELPHALAN) [Concomitant]
  3. PREDNISONE [Concomitant]
  4. DIOVAN (VALSARTAN) [Concomitant]
  5. GLUCOVANCE (GLIBOMET) [Concomitant]
  6. LASIX (FUROSEMIDE) [Concomitant]
  7. NEURONTIN (GABAPENTIN) [Concomitant]
  8. POTASSIUM CHLORIDE [Concomitant]
  9. COUMADIN (WARFARIN SODIUM) [Concomitant]

REACTIONS (3)
  - Bone marrow failure [None]
  - Thrombocytopenia [None]
  - Neuropathy peripheral [None]
